FAERS Safety Report 6775830-1 (Version None)
Quarter: 2010Q2

REPORT INFORMATION
  Report Type: 
  Country: None (occurrence: None)
  Receive Date: 20100615
  Receipt Date: 20100602
  Transmission Date: 20101027
  Serious: Yes (Hospitalization)
  Sender: FDA-Public Use
  Company Number: 013361

PATIENT
  Sex: Female
  Weight: 178 kg

DRUGS (11)
  1. CERTOLIZUMAB PEGOL [Suspect]
     Indication: RHEUMATOID ARTHRITIS
     Dosage: 200 MG 1X/2 WEEKS, N OF DOSES: 17 SUBCUTANEOUS
     Route: 058
     Dates: start: 20090630, end: 20100524
  2. METHOTREXATE [Concomitant]
  3. PREDNISONE [Concomitant]
  4. TEMAZEPAM [Concomitant]
  5. NORTRIPTYLINE [Concomitant]
  6. SIMVASTATIN [Concomitant]
  7. OXYCODONE HCL AND ACETAMINOPHEN [Concomitant]
  8. GABAPENTIN [Concomitant]
  9. LIDODERM [Concomitant]
  10. MOTRIN [Concomitant]
  11. FOLIC ACID [Concomitant]

REACTIONS (1)
  - LIVER FUNCTION TEST ABNORMAL [None]
